FAERS Safety Report 19066784 (Version 3)
Quarter: 2021Q1

REPORT INFORMATION
  Report Type: Spontaneous
  Country: US (occurrence: US)
  Receive Date: 20210329
  Receipt Date: 20210330
  Transmission Date: 20210420
  Serious: Yes (Other)
  Sender: FDA-Public Use
  Company Number: US-CELGENEUS-USA-20210306529

PATIENT
  Sex: Male
  Weight: 131.66 kg

DRUGS (4)
  1. POMALYST [Suspect]
     Active Substance: POMALIDOMIDE
     Indication: PLASMA CELL MYELOMA
     Dosage: 2 MILLIGRAM
     Route: 048
     Dates: start: 20151013
  2. POMALYST [Suspect]
     Active Substance: POMALIDOMIDE
     Dosage: 4?2 MILLIGRAM
     Route: 048
     Dates: start: 201512
  3. POMALYST [Suspect]
     Active Substance: POMALIDOMIDE
     Dosage: 4 MILLIGRAM
     Route: 048
     Dates: start: 201608
  4. POMALYST [Suspect]
     Active Substance: POMALIDOMIDE
     Indication: PLASMA CELL MYELOMA IN REMISSION
     Dosage: 3 MILLIGRAM
     Route: 048
     Dates: start: 201511

REACTIONS (1)
  - Cataract [Unknown]
